FAERS Safety Report 13089809 (Version 1)
Quarter: 2017Q1

REPORT INFORMATION
  Report Type: Spontaneous
  Country: US (occurrence: US)
  Receive Date: 20170105
  Receipt Date: 20170105
  Transmission Date: 20170509
  Serious: No
  Sender: FDA-Public Use
  Company Number: US-PERRIGO-16US022819

PATIENT
  Age: 53 Year
  Sex: Female
  Weight: 48.73 kg

DRUGS (3)
  1. CLINDESSE [Suspect]
     Active Substance: CLINDAMYCIN PHOSPHATE
     Indication: BACTERIAL VAGINOSIS
     Dosage: 100 MG, SINGLE
     Route: 067
     Dates: start: 20161027, end: 20161027
  2. ESTRING [Concomitant]
     Active Substance: ESTRADIOL
     Indication: VULVOVAGINAL DRYNESS
     Dosage: UNK
     Route: 065
     Dates: start: 201510, end: 20161122
  3. SYNTHROID [Concomitant]
     Active Substance: LEVOTHYROXINE SODIUM
     Indication: THYROIDECTOMY
     Dosage: 75 MCG, QD
     Route: 048
     Dates: start: 1986

REACTIONS (4)
  - Vulvovaginal burning sensation [Unknown]
  - Vulvovaginal discomfort [Recovered/Resolved]
  - Drug ineffective [Unknown]
  - Vulvovaginal erythema [Not Recovered/Not Resolved]

NARRATIVE: CASE EVENT DATE: 20161027
